FAERS Safety Report 8553415-4 (Version None)
Quarter: 2012Q3

REPORT INFORMATION
  Report Type: 
  Country: None (occurrence: None)
  Receive Date: 20120731
  Receipt Date: 20120724
  Transmission Date: 20120928
  Serious: Yes (Death, Hospitalization, Other)
  Sender: FDA-Public Use
  Company Number: US-ROCHE-1092530

PATIENT
  Age: 57 Year
  Sex: Male

DRUGS (4)
  1. PEGASYS [Suspect]
     Indication: HEPATITIS C
  2. TELAPREVIR [Suspect]
     Indication: HEPATITIS C
  3. RIBAVIRIN [Suspect]
     Indication: HEPATITIS C
  4. ALLOPURINOL [Suspect]
     Indication: HEPATITIS C

REACTIONS (5)
  - DEATH [None]
  - TUBULOINTERSTITIAL NEPHRITIS [None]
  - RASH [None]
  - SEPSIS [None]
  - RENAL FAILURE [None]
